FAERS Safety Report 10809255 (Version 1)
Quarter: 2015Q1

REPORT INFORMATION
  Report Type: Report from Study
  Country: US (occurrence: US)
  Receive Date: 20150217
  Receipt Date: 20150217
  Transmission Date: 20150721
  Serious: No
  Sender: FDA-Public Use
  Company Number: US-ABBVIE-14K-163-1269266-00

PATIENT
  Sex: Male

DRUGS (3)
  1. HUMIRA [Suspect]
     Active Substance: ADALIMUMAB
     Indication: PRODUCT USED FOR UNKNOWN INDICATION
     Dates: start: 20140723, end: 20140723
  2. HUMIRA [Suspect]
     Active Substance: ADALIMUMAB
     Dates: start: 20140730
  3. ANTIBIOTICS [Suspect]
     Active Substance: UNSPECIFIED INGREDIENT
     Indication: INTESTINAL FISTULA
     Dosage: TWO TO THREE TIMES A YEAR

REACTIONS (5)
  - Feeling abnormal [Not Recovered/Not Resolved]
  - Local swelling [Not Recovered/Not Resolved]
  - Intestinal fistula infection [Not Recovered/Not Resolved]
  - Nasopharyngitis [Not Recovered/Not Resolved]
  - Intestinal fistula [Not Recovered/Not Resolved]
